FAERS Safety Report 19498269 (Version 1)
Quarter: 2021Q3

REPORT INFORMATION
  Report Type: Spontaneous
  Country: JP (occurrence: JP)
  Receive Date: 20210706
  Receipt Date: 20210706
  Transmission Date: 20211014
  Serious: Yes (Other)
  Sender: FDA-Public Use
  Company Number: JP-PFIZER INC-2021763594

PATIENT

DRUGS (3)
  1. LYRICA [Suspect]
     Active Substance: PREGABALIN
     Indication: SWELLING FACE
     Dosage: UNK UNK, 2X/DAY
     Route: 048
     Dates: start: 201406, end: 201412
  2. METHYCOBAL [Concomitant]
     Active Substance: METHYLCOBALAMIN
     Dosage: UNK
     Dates: start: 2017
  3. LYRICA [Suspect]
     Active Substance: PREGABALIN
     Indication: TRIGEMINAL NEURALGIA

REACTIONS (3)
  - Atrial fibrillation [Recovered/Resolved]
  - Dyspnoea [Recovered/Resolved]
  - Angina pectoris [Recovered/Resolved]

NARRATIVE: CASE EVENT DATE: 2014
